FAERS Safety Report 25414201 (Version 4)
Quarter: 2025Q3

REPORT INFORMATION
  Report Type: Spontaneous
  Country: JP (occurrence: JP)
  Receive Date: 20250609
  Receipt Date: 20250709
  Transmission Date: 20251021
  Serious: Yes (Hospitalization, Other)
  Sender: PFIZER
  Company Number: JP-ONO-2025JP009569

PATIENT
  Age: 64 Year
  Sex: Female
  Weight: 56 kg

DRUGS (13)
  1. BRAFTOVI [Suspect]
     Active Substance: ENCORAFENIB
     Indication: Colon cancer
     Dosage: 300 MG, 1X/DAY (EVERYDAY)
     Route: 048
     Dates: start: 20250203, end: 20250217
  2. BRAFTOVI [Suspect]
     Active Substance: ENCORAFENIB
     Dosage: 300 MG, 1X/DAY (EVERYDAY)
     Route: 048
     Dates: start: 20250222, end: 20250323
  3. BRAFTOVI [Suspect]
     Active Substance: ENCORAFENIB
     Dosage: 225 MG, 1X/DAY (EVERYDAY)
     Route: 048
     Dates: start: 20250408
  4. MEKTOVI [Suspect]
     Active Substance: BINIMETINIB
     Indication: Colon cancer
     Dosage: 45 MG, Q12H
     Route: 048
     Dates: start: 20250203, end: 20250217
  5. MEKTOVI [Suspect]
     Active Substance: BINIMETINIB
     Dosage: 90 MG, 1X/DAY (EVERYDAY)
     Route: 048
     Dates: start: 20250222, end: 20250323
  6. MEKTOVI [Suspect]
     Active Substance: BINIMETINIB
     Dosage: 60 MG, 1X/DAY (EVERYDAY)
     Route: 048
     Dates: start: 20250408
  7. ERBITUX [Suspect]
     Active Substance: CETUXIMAB
     Indication: Colon cancer
     Route: 042
     Dates: start: 20250203, end: 20250203
  8. ERBITUX [Suspect]
     Active Substance: CETUXIMAB
     Route: 042
     Dates: start: 20250222
  9. LAFUTIDINE [Concomitant]
     Active Substance: LAFUTIDINE
     Route: 048
     Dates: end: 20250216
  10. SODIUM FERROUS CITRATE [Concomitant]
     Active Substance: SODIUM FERROUS CITRATE
     Route: 048
     Dates: start: 20250120, end: 20250216
  11. AZILSARTAN KAMEDOXOMIL [Concomitant]
     Active Substance: AZILSARTAN KAMEDOXOMIL
     Route: 048
     Dates: end: 20250216
  12. CRESTOR [Concomitant]
     Active Substance: ROSUVASTATIN CALCIUM
     Route: 048
     Dates: end: 20250216
  13. FUROSEMIDE [Concomitant]
     Active Substance: FUROSEMIDE
     Route: 048
     Dates: end: 20250216

REACTIONS (3)
  - Acute kidney injury [Recovering/Resolving]
  - Diarrhoea [Recovering/Resolving]
  - Constipation [Unknown]

NARRATIVE: CASE EVENT DATE: 20250217
